FAERS Safety Report 9225071 (Version 1)
Quarter: 2013Q1

REPORT INFORMATION
  Report Type: Spontaneous
  Country: US (occurrence: None)
  Receive Date: 20120912
  Receipt Date: 20120912
  Transmission Date: 20140127
  Serious: No
  Sender: FDA-Public Use
  Company Number: 2012SP022405

PATIENT
  Age: 40 Year
  Sex: Female

DRUGS (6)
  1. VICTRELIS (200 MG) [Suspect]
     Indication: HEPATITIS C
     Dates: start: 20120217
  2. RIBAVIRIN [Suspect]
     Indication: PRODUCT USED FOR UNKNOWN INDICATION
  3. PEGASYS [Suspect]
  4. WARFARIN [Concomitant]
  5. SPIRONOLACTONE [Concomitant]
  6. FUROSEMIDE [Concomitant]

REACTIONS (1)
  - Dysgeusia [None]
